FAERS Safety Report 16327172 (Version 1)
Quarter: 2019Q2

REPORT INFORMATION
  Report Type: Spontaneous
  Country: US (occurrence: US)
  Receive Date: 20190517
  Receipt Date: 20190517
  Transmission Date: 20190711
  Serious: No
  Sender: FDA-Public Use
  Company Number: US-SA-2019SA132668

PATIENT

DRUGS (1)
  1. ALLEGRA [Suspect]
     Active Substance: FEXOFENADINE HYDROCHLORIDE
     Indication: ECZEMA
     Dosage: UNK UNK, UNK
     Route: 065
     Dates: start: 20171001

REACTIONS (1)
  - Drug effective for unapproved indication [Unknown]
